FAERS Safety Report 5706027-1 (Version None)
Quarter: 2008Q2

REPORT INFORMATION
  Report Type: 
  Country: None (occurrence: None)
  Receive Date: 20080415
  Receipt Date: 20080415
  Transmission Date: 20081010
  Serious: Yes (Life-Threatening, Hospitalization)
  Sender: FDA-Public Use
  Company Number: PHEH2000US08591

PATIENT
  Age: 52 Year
  Sex: Male
  Weight: 116 kg

DRUGS (25)
  1. PREDNISONE [Concomitant]
     Dosage: 7 MG, QD
     Route: 048
  2. BACTRIM [Concomitant]
     Dosage: EVERY OTHER DAY
     Route: 048
  3. GANCICLOVIR [Concomitant]
     Dosage: 500 MG, QD
     Route: 048
  4. BIAXIN [Concomitant]
     Dosage: 250 MG, QD
     Route: 048
  5. MYCOSTATIN [Concomitant]
     Dosage: UNK, TID
     Route: 048
  6. LASIX [Concomitant]
     Dosage: 80 MG, QD
     Route: 048
  7. REGLAN [Concomitant]
     Dosage: 10 MG, QHS
     Route: 048
  8. FERROUS SULFATE TAB [Concomitant]
     Dosage: 324 MG, BID
     Route: 048
  9. CIPRO [Concomitant]
     Dosage: 500 MG, QD
     Route: 048
  10. AXID [Concomitant]
     Dosage: 150 MG, BID
     Route: 048
  11. COMBIVENT [Concomitant]
     Dosage: TWO PUFFS, BID
  12. FLONASE [Concomitant]
     Dosage: 50 MG, BID
     Route: 048
  13. LOPID [Suspect]
     Dosage: 600 MG, BID
     Route: 048
  14. METROGEL [Concomitant]
     Dosage: .75 MG, QHS
  15. EPOGEN [Concomitant]
     Dosage: UNK, UNK
  16. CLARITIN [Concomitant]
     Dosage: UNK, UNK
  17. RAD001OR AZATHIOPRINE [Suspect]
     Indication: LUNG TRANSPLANT
     Dosage: CODE NOT BROKEN
     Dates: start: 20001023, end: 20010723
  18. RAD001OR AZATHIOPRINE [Suspect]
     Dosage: 1.5 MG, BID
     Route: 048
     Dates: start: 20000131, end: 20000913
  19. NEORAL [Suspect]
     Indication: LUNG TRANSPLANT
     Dosage: 60 MG, BID
     Route: 048
     Dates: start: 20000807
  20. NEORAL [Suspect]
     Dosage: 100 MG, BID
     Route: 048
     Dates: start: 20000807, end: 20000913
  21. LIPITOR [Suspect]
     Indication: HYPERCHOLESTEROLAEMIA
  22. PREVACID [Concomitant]
  23. FOLIC ACID [Concomitant]
  24. PHOSLO [Concomitant]
  25. ASPIRIN [Concomitant]

REACTIONS (8)
  - BRADYCARDIA [None]
  - FLUID OVERLOAD [None]
  - HYPERKALAEMIA [None]
  - LIVER FUNCTION TEST ABNORMAL [None]
  - METABOLIC ACIDOSIS [None]
  - RENAL FAILURE ACUTE [None]
  - RENAL FAILURE CHRONIC [None]
  - RHABDOMYOLYSIS [None]
